FAERS Safety Report 21363165 (Version 1)
Quarter: 2022Q3

REPORT INFORMATION
  Report Type: Spontaneous
  Country: US (occurrence: US)
  Receive Date: 20220922
  Receipt Date: 20220922
  Transmission Date: 20221027
  Serious: No
  Sender: FDA-Public Use
  Company Number: US-ELI_LILLY_AND_COMPANY-US202209008965

PATIENT
  Sex: Male

DRUGS (6)
  1. HUMALOG [Suspect]
     Active Substance: INSULIN LISPRO
     Indication: Type 2 diabetes mellitus
     Dosage: 80 U, UNKNOWN
     Route: 058
     Dates: start: 2021
  2. HUMALOG [Suspect]
     Active Substance: INSULIN LISPRO
     Indication: Type 2 diabetes mellitus
     Dosage: 80 U, UNKNOWN
     Route: 058
     Dates: start: 2021
  3. HUMALOG [Suspect]
     Active Substance: INSULIN LISPRO
     Dosage: 80 U, UNKNOWN
     Route: 058
     Dates: start: 2021
  4. HUMALOG [Suspect]
     Active Substance: INSULIN LISPRO
     Dosage: 80 U, UNKNOWN
     Route: 058
     Dates: start: 2021
  5. TOUJEO [Concomitant]
     Active Substance: INSULIN GLARGINE
     Indication: Product used for unknown indication
  6. OZEMPIC [Concomitant]
     Active Substance: SEMAGLUTIDE
     Indication: Product used for unknown indication

REACTIONS (1)
  - Blood glucose increased [Unknown]
